FAERS Safety Report 23783477 (Version 4)
Quarter: 2024Q2

REPORT INFORMATION
  Report Type: Spontaneous
  Country: GB (occurrence: GB)
  Receive Date: 20240425
  Receipt Date: 20240529
  Transmission Date: 20240716
  Serious: Yes (Hospitalization, Other)
  Sender: FDA-Public Use
  Company Number: GB-SA-SAC20240416001019

PATIENT
  Age: 76 Year
  Sex: Male
  Weight: 60.3 kg

DRUGS (10)
  1. PEMBROLIZUMAB [Suspect]
     Active Substance: PEMBROLIZUMAB
     Indication: Colorectal cancer metastatic
     Dosage: 400 MG Q6W (6 WEEKLY)
     Route: 041
     Dates: start: 20240314
  2. CETUXIMAB [Suspect]
     Active Substance: CETUXIMAB
     Indication: Colorectal cancer metastatic
     Dosage: 800 MG QOW(2 WEEKLY)
     Route: 041
     Dates: start: 20240314
  3. BRAFTOVI [Suspect]
     Active Substance: ENCORAFENIB
     Indication: Colorectal cancer metastatic
     Dosage: 300 MG, QD (1/DAY)
     Route: 048
     Dates: start: 20240314
  4. RAMIPRIL [Suspect]
     Active Substance: RAMIPRIL
     Indication: Type 2 diabetes mellitus
     Dosage: 1.25 MG, QD (1/DAY)
     Route: 048
     Dates: start: 20240320
  5. AMLODIPINE [Concomitant]
     Active Substance: AMLODIPINE BESYLATE
     Indication: Prophylaxis
     Dosage: UNK; ;
     Route: 050
     Dates: start: 20171226
  6. ATORVASTATIN [Concomitant]
     Active Substance: ATORVASTATIN
     Indication: Prophylaxis
     Dosage: UNK; ;
     Route: 050
     Dates: start: 20171206
  7. CLOPIDOGREL [Concomitant]
     Active Substance: CLOPIDOGREL BISULFATE
     Indication: Prophylaxis
     Dosage: UNK; ;
     Route: 050
     Dates: start: 20171221
  8. GLICLAZIDE [Concomitant]
     Active Substance: GLICLAZIDE
     Indication: Type 2 diabetes mellitus
     Dosage: UNK; ;
     Route: 050
     Dates: start: 20240329
  9. LANSOPRAZOLE [Concomitant]
     Active Substance: LANSOPRAZOLE
     Indication: Prophylaxis
     Dosage: UNK; ;
     Route: 050
     Dates: start: 20230510
  10. METFORMIN [Concomitant]
     Active Substance: METFORMIN HYDROCHLORIDE
     Indication: Type 2 diabetes mellitus
     Dosage: UNK; ;
     Route: 050
     Dates: start: 20191119

REACTIONS (2)
  - Hyperkalaemia [Recovered/Resolved]
  - Blood bicarbonate decreased [Unknown]

NARRATIVE: CASE EVENT DATE: 20240409
